FAERS Safety Report 15188602 (Version 4)
Quarter: 2018Q4

REPORT INFORMATION
  Report Type: Spontaneous
  Country: US (occurrence: US)
  Receive Date: 20180724
  Receipt Date: 20181211
  Transmission Date: 20190204
  Serious: No
  Sender: FDA-Public Use
  Company Number: US-PFIZER INC-2018295853

PATIENT
  Sex: Female
  Weight: 40.82 kg

DRUGS (2)
  1. XANAX [Suspect]
     Active Substance: ALPRAZOLAM
     Dosage: 1MG, TABLETS, 3 X DAYS
     Dates: start: 2000
  2. XANAX [Suspect]
     Active Substance: ALPRAZOLAM
     Dosage: 1MG, TABLETS, 3 X DAYS

REACTIONS (1)
  - Abnormal behaviour [Unknown]
